FAERS Safety Report 9025960 (Version 1)
Quarter: 2013Q1

REPORT INFORMATION
  Report Type: Spontaneous
  Country: DE (occurrence: None)
  Receive Date: 20130104
  Receipt Date: 20130104
  Transmission Date: 20140127
  Serious: Yes (Other)
  Sender: FDA-Public Use
  Company Number: AUR-APL-2012-05643

PATIENT
  Age: 18 Year
  Sex: Female

DRUGS (1)
  1. TERBINAFINE [Suspect]
     Indication: PRODUCT USED FOR UNKNOWN INDICATION
     Route: 048

REACTIONS (3)
  - Haematochezia [None]
  - Product substitution issue [None]
  - Product quality issue [None]
